FAERS Safety Report 4416741-6 (Version None)
Quarter: 2004Q2

REPORT INFORMATION
  Report Type: 
  Country: None (occurrence: None)
  Receive Date: 20040630
  Receipt Date: 20040406
  Transmission Date: 20050107
  Serious: No
  Sender: FDA-Public Use
  Company Number: 04P-163-0256037-00

PATIENT
  Age: 46 Year
  Sex: Female
  Weight: 56.6996 kg

DRUGS (7)
  1. HUMIRA [Suspect]
     Indication: RHEUMATOID ARTHRITIS
     Dosage: 40 MG, 1 IN 2 WK, SUBCUTANEOUS
     Route: 058
     Dates: start: 20040209, end: 20040401
  2. HYDROXYCHLOROQUINE PHOSPHATE [Concomitant]
  3. CELECOXIB [Concomitant]
  4. PRIMIDONE [Concomitant]
  5. MULTI-VITAMINS [Concomitant]
  6. OMEGA 3,6,9 [Concomitant]
  7. PREDNISONE [Concomitant]

REACTIONS (2)
  - BREAST MASS [None]
  - PRECANCEROUS CELLS PRESENT [None]
